FAERS Safety Report 5710204-3 (Version None)
Quarter: 2008Q2

REPORT INFORMATION
  Report Type: 
  Country: None (occurrence: None)
  Receive Date: 20080418
  Receipt Date: 20080411
  Transmission Date: 20081010
  Serious: Yes (Hospitalization)
  Sender: FDA-Public Use
  Company Number: US-GENENTECH-252187

PATIENT
  Sex: Male
  Weight: 94.5 kg

DRUGS (26)
  1. RITUXIMAB [Suspect]
     Indication: SYSTEMIC LUPUS ERYTHEMATOSUS
     Dosage: 1 G, X4
     Route: 042
     Dates: start: 20070604
  2. PREDNISONE [Concomitant]
     Indication: LUPUS NEPHRITIS
     Dosage: 10 MG, QD
     Route: 048
     Dates: end: 20070925
  3. PREDNISONE [Concomitant]
     Dosage: 20 MG, UNK
     Dates: start: 20070926
  4. NORVASC [Concomitant]
     Indication: HYPERTENSION
     Dosage: 10 MG, BID
     Route: 048
     Dates: end: 20070906
  5. ENOXAPARIN SODIUM [Concomitant]
     Indication: DRUG USE FOR UNKNOWN INDICATION
     Dosage: 40 MG, QD
     Route: 058
  6. EPOETIN [Concomitant]
     Indication: DRUG USE FOR UNKNOWN INDICATION
     Dosage: 40000 IU, 1/WEEK
     Route: 058
  7. INSULIN [Concomitant]
     Indication: TYPE 2 DIABETES MELLITUS
  8. IPRATROPIUM BROMIDE [Concomitant]
     Indication: DRUG USE FOR UNKNOWN INDICATION
  9. AMPHOTERICIN B [Concomitant]
     Indication: DRUG USE FOR UNKNOWN INDICATION
     Dates: end: 20070919
  10. PLAQUENIL [Concomitant]
     Indication: LUPUS NEPHRITIS
     Dosage: 200 MG, BID
     Route: 048
     Dates: start: 20070907
  11. PROCARDIA XL [Concomitant]
     Indication: RAYNAUD'S PHENOMENON
     Dosage: 30 MG, QD
     Route: 048
     Dates: start: 20070907
  12. PROCRIT [Concomitant]
     Indication: HYPERTENSION
  13. CEFEPIME [Concomitant]
     Indication: DRUG USE FOR UNKNOWN INDICATION
  14. DEMADEX [Concomitant]
     Indication: DRUG USE FOR UNKNOWN INDICATION
  15. XOPENEX [Concomitant]
     Indication: DRUG USE FOR UNKNOWN INDICATION
  16. HUMULIN R [Concomitant]
     Indication: TYPE 2 DIABETES MELLITUS
  17. ARANESP [Concomitant]
     Indication: ANAEMIA
     Dosage: 100 UNK, 1/WEEK
     Route: 058
  18. HYDROXYCHLOROQUINE [Concomitant]
     Indication: LUPUS NEPHRITIS
     Dosage: 200 MG, Q12H
     Route: 048
  19. LEVALBUTEROL HCL [Concomitant]
     Indication: DRUG USE FOR UNKNOWN INDICATION
     Dosage: 1.25 MG, X4
     Route: 050
  20. LOPERAMIDE HCL [Concomitant]
     Indication: DRUG USE FOR UNKNOWN INDICATION
     Dosage: 2 MG, BID
     Route: 048
  21. ZOFRAN [Concomitant]
     Indication: DRUG USE FOR UNKNOWN INDICATION
     Dosage: UNK, PRN
     Route: 042
  22. HYDROCODONE BITARTRATE [Concomitant]
     Indication: PAIN
     Dosage: 1 TABLET, PRN
     Route: 048
     Dates: start: 20070812
  23. XANAX [Concomitant]
     Indication: DRUG USE FOR UNKNOWN INDICATION
     Dosage: 0.25 MG, Q8H
     Route: 048
  24. ABELCET [Concomitant]
     Indication: DRUG USE FOR UNKNOWN INDICATION
     Dates: start: 20070820
  25. PHENERGAN [Concomitant]
     Indication: DRUG USE FOR UNKNOWN INDICATION
  26. LISINOPRIL [Concomitant]
     Indication: HYPERTENSION
     Dosage: 20 MG, BID
     Route: 048
     Dates: start: 20070420

REACTIONS (1)
  - RESPIRATORY FAILURE [None]
